FAERS Safety Report 9619778 (Version 9)
Quarter: 2015Q2

REPORT INFORMATION
  Report Type: Spontaneous
  Country: JP (occurrence: JP)
  Receive Date: 20131014
  Receipt Date: 20150421
  Transmission Date: 20150821
  Serious: Yes (Hospitalization, Other)
  Sender: FDA-Public Use
  Company Number: JP-GLAXOSMITHKLINE-B0929698A

PATIENT
  Age: 43 Year
  Sex: Female
  Weight: 56 kg

DRUGS (15)
  1. MUCOSTA [Concomitant]
     Active Substance: REBAMIPIDE
     Route: 065
  2. THYRADIN [Concomitant]
     Active Substance: LEVOTHYROXINE
     Route: 048
  3. VOTRIENT [Suspect]
     Active Substance: PAZOPANIB HYDROCHLORIDE
     Route: 048
     Dates: start: 20131004, end: 20131017
  4. AMLODIPINE [Concomitant]
     Active Substance: AMLODIPINE BESYLATE
     Route: 048
  5. LOXONIN [Concomitant]
     Active Substance: LOXOPROFEN SODIUM
     Route: 065
  6. FUROSEMIDE. [Concomitant]
     Active Substance: FUROSEMIDE
     Route: 065
  7. ALDACTONE [Concomitant]
     Active Substance: SPIRONOLACTONE
     Route: 048
  8. PROMAC [Concomitant]
     Active Substance: NITROFURANTOIN
     Route: 048
  9. UNKNOWN DRUG [Concomitant]
     Active Substance: UNSPECIFIED INGREDIENT
     Route: 048
     Dates: start: 20131004
  10. GASTER [Concomitant]
     Active Substance: FAMOTIDINE
     Route: 065
  11. NAUZELIN [Concomitant]
     Active Substance: DOMPERIDONE
     Route: 065
  12. SERENACE [Concomitant]
     Active Substance: HALOPERIDOL
     Route: 065
  13. VOTRIENT [Suspect]
     Active Substance: PAZOPANIB HYDROCHLORIDE
     Indication: SYNOVIAL SARCOMA
     Route: 048
     Dates: start: 20130921, end: 20131003
  14. VOTRIENT [Suspect]
     Active Substance: PAZOPANIB HYDROCHLORIDE
     Route: 048
     Dates: start: 20131018, end: 20140123
  15. UNKNOWNDRUG [Suspect]
     Active Substance: UNSPECIFIED INGREDIENT
     Route: 065

REACTIONS (7)
  - Hepatic function abnormal [Recovering/Resolving]
  - Hyperthyroidism [Recovering/Resolving]
  - Oedema [Recovering/Resolving]
  - Left ventricular dysfunction [Recovering/Resolving]
  - Vomiting [Recovering/Resolving]
  - Dehydration [Unknown]
  - Nausea [Recovering/Resolving]

NARRATIVE: CASE EVENT DATE: 20131004
